FAERS Safety Report 15415360 (Version 2)
Quarter: 2018Q3

REPORT INFORMATION
  Report Type: Spontaneous
  Country: US (occurrence: US)
  Receive Date: 20180921
  Receipt Date: 20180925
  Transmission Date: 20181010
  Serious: No
  Sender: FDA-Public Use
  Company Number: US-VIFOR (INTERNATIONAL) INC.-VIT-2018-09321

PATIENT
  Age: 62 Year
  Sex: Female

DRUGS (12)
  1. ATORVASTATIN CALCIUM. [Concomitant]
     Active Substance: ATORVASTATIN CALCIUM
  2. RENVELA [Concomitant]
     Active Substance: SEVELAMER CARBONATE
  3. FUROSEMIDE. [Concomitant]
     Active Substance: FUROSEMIDE
  4. NIFEDIPINE. [Concomitant]
     Active Substance: NIFEDIPINE
  5. OMEPRAZOLE. [Concomitant]
     Active Substance: OMEPRAZOLE
  6. CETIRIZINE HCL [Concomitant]
     Active Substance: CETIRIZINE HYDROCHLORIDE
  7. AMITRIPTYLINE HCL [Concomitant]
     Active Substance: AMITRIPTYLINE
  8. MULTIVITAMIN ADULTS [Concomitant]
  9. ASPIRIN 81 [Concomitant]
     Active Substance: ASPIRIN
  10. CARVEDILOL. [Concomitant]
     Active Substance: CARVEDILOL
  11. VELTASSA [Suspect]
     Active Substance: PATIROMER
     Indication: HYPERKALAEMIA
     Route: 048
     Dates: start: 20180725
  12. GABAPENTIN. [Concomitant]
     Active Substance: GABAPENTIN

REACTIONS (2)
  - Treatment noncompliance [Unknown]
  - Constipation [Unknown]

NARRATIVE: CASE EVENT DATE: 20180725
